FAERS Safety Report 14806484 (Version 2)
Quarter: 2019Q1

REPORT INFORMATION
  Report Type: Spontaneous
  Country: US (occurrence: US)
  Receive Date: 20180425
  Receipt Date: 20190227
  Transmission Date: 20190417
  Serious: Yes (Other)
  Sender: FDA-Public Use
  Company Number: US-PFIZER INC-2018167447

PATIENT
  Age: 64 Year
  Sex: Male

DRUGS (1)
  1. RIFABUTIN. [Suspect]
     Active Substance: RIFABUTIN
     Dosage: UNK

REACTIONS (4)
  - Encephalopathy [Unknown]
  - Mental status changes [Unknown]
  - Psychotic disorder [Unknown]
  - Drug hypersensitivity [Unknown]

NARRATIVE: CASE EVENT DATE: 201512
